FAERS Safety Report 16536781 (Version 1)
Quarter: 2019Q3

REPORT INFORMATION
  Report Type: Spontaneous
  Country: US (occurrence: US)
  Receive Date: 20190706
  Receipt Date: 20190706
  Transmission Date: 20191004
  Serious: Yes (Other)
  Sender: FDA-Public Use
  Company Number: US-009507513-1907USA001458

PATIENT
  Age: 29 Year
  Sex: Female
  Weight: 108.84 kg

DRUGS (7)
  1. GLIMEPIRIDE. [Concomitant]
     Active Substance: GLIMEPIRIDE
     Dosage: 2 MILLIGRAM, QD
  2. NEXPLANON [Suspect]
     Active Substance: ETONOGESTREL
     Indication: CONTRACEPTION
     Dosage: 1 ROD UP TO 3 YEARS, LEFT ARM
     Route: 059
     Dates: start: 20161028, end: 20190529
  3. METFORMIN HYDROCHLORIDE. [Concomitant]
     Active Substance: METFORMIN HYDROCHLORIDE
     Dosage: 100 MILLIGRAM, BID
  4. LEVEMIR [Concomitant]
     Active Substance: INSULIN DETEMIR
     Dosage: 19 UNITS, DAILY AT NIGHT
  5. ASPIRIN. [Concomitant]
     Active Substance: ASPIRIN
     Dosage: 81 MILLIGRAM, QD
  6. FOLIC ACID. [Concomitant]
     Active Substance: FOLIC ACID
     Dosage: 400 MICROGRAM, QD
  7. CYANOCOBALAMIN. [Concomitant]
     Active Substance: CYANOCOBALAMIN
     Dosage: 1 DOSAGE FORM, QD

REACTIONS (6)
  - Complication associated with device [Recovered/Resolved]
  - Headache [Recovering/Resolving]
  - Device dislocation [Recovered/Resolved]
  - Polymenorrhoea [Recovering/Resolving]
  - Amenorrhoea [Recovered/Resolved]
  - Hot flush [Recovering/Resolving]

NARRATIVE: CASE EVENT DATE: 201803
